FAERS Safety Report 14921842 (Version 1)
Quarter: 2018Q2

REPORT INFORMATION
  Report Type: Spontaneous
  Country: FR (occurrence: FR)
  Receive Date: 20180522
  Receipt Date: 20180522
  Transmission Date: 20180711
  Serious: Yes (Other)
  Sender: FDA-Public Use
  Company Number: FR-MERCK KGAA-2048202

PATIENT
  Age: 62 Year
  Sex: Female

DRUGS (1)
  1. NOVOTHYROX [Suspect]
     Active Substance: LEVOTHYROXINE SODIUM
     Indication: PRODUCT USED FOR UNKNOWN INDICATION
     Dates: start: 20170421

REACTIONS (26)
  - Stress [None]
  - Weight decreased [None]
  - Loss of personal independence in daily activities [None]
  - Blindness [None]
  - Aphasia [None]
  - Disturbance in attention [None]
  - Blood thyroid stimulating hormone decreased [Recovered/Resolved]
  - Alopecia [None]
  - Aggression [None]
  - Anxiety [None]
  - Impatience [None]
  - Decreased interest [None]
  - Social avoidant behaviour [None]
  - Impaired work ability [None]
  - Libido decreased [None]
  - Eye discharge [None]
  - Apathy [None]
  - Irritability [None]
  - Feeling abnormal [None]
  - Amnesia [None]
  - Nausea [None]
  - Fatigue [None]
  - Visual impairment [None]
  - Asthenia [None]
  - Personal relationship issue [None]
  - Thyroxine free increased [None]

NARRATIVE: CASE EVENT DATE: 20170728
